FAERS Safety Report 19013917 (Version 1)
Quarter: 2021Q1

REPORT INFORMATION
  Report Type: Spontaneous
  Country: CA (occurrence: CA)
  Receive Date: 20210316
  Receipt Date: 20210316
  Transmission Date: 20210420
  Serious: Yes (Hospitalization, Other)
  Sender: FDA-Public Use
  Company Number: CA-ABBVIE-21K-028-3811839-00

PATIENT
  Sex: Female

DRUGS (2)
  1. ENTYVIO [Concomitant]
     Active Substance: VEDOLIZUMAB
     Indication: PRODUCT USED FOR UNKNOWN INDICATION
     Dates: start: 2018, end: 202006
  2. HUMIRA [Suspect]
     Active Substance: ADALIMUMAB
     Indication: PRODUCT USED FOR UNKNOWN INDICATION
     Route: 058
     Dates: start: 202006, end: 202102

REACTIONS (15)
  - Colitis [Unknown]
  - Diarrhoea haemorrhagic [Unknown]
  - Pyrexia [Unknown]
  - Rash macular [Unknown]
  - Heart rate irregular [Unknown]
  - Infusion related reaction [Unknown]
  - Rash [Unknown]
  - Dizziness [Unknown]
  - Diarrhoea [Unknown]
  - Drug ineffective [Unknown]
  - Weight decreased [Unknown]
  - Anaemia [Unknown]
  - Erythema [Unknown]
  - Abdominal pain [Unknown]
  - Blood pressure fluctuation [Unknown]
